FAERS Safety Report 14296798 (Version 4)
Quarter: 2018Q1

REPORT INFORMATION
  Report Type: Spontaneous
  Country: JP (occurrence: JP)
  Receive Date: 20171218
  Receipt Date: 20180313
  Transmission Date: 20180509
  Serious: Yes (Life-Threatening, Disabling, Other)
  Sender: FDA-Public Use
  Company Number: JP-009507513-1709JPN001038J

PATIENT
  Age: 71 Year
  Sex: Female
  Weight: 45 kg

DRUGS (12)
  1. PROPOFOL. [Concomitant]
     Active Substance: PROPOFOL
     Indication: GENERAL ANAESTHESIA
     Dosage: 70 MG, UNK
     Route: 042
     Dates: start: 20170815, end: 20170815
  2. ULTIVA [Concomitant]
     Active Substance: REMIFENTANIL HYDROCHLORIDE
     Indication: GENERAL ANAESTHESIA
     Dosage: 0.85 MG, UNK
     Route: 042
     Dates: start: 20170815, end: 20170815
  3. NORADRENALINE [Concomitant]
     Active Substance: NOREPINEPHRINE
     Indication: GENERAL ANAESTHESIA
     Dosage: 1.5 MG, UNK
     Route: 042
     Dates: start: 20170815, end: 20170815
  4. ANAPEINE [Concomitant]
     Active Substance: ROPIVACAINE HYDROCHLORIDE
     Indication: EPIDURAL ANAESTHESIA
     Dosage: 37.5 MG, UNK
     Route: 042
     Dates: start: 20170815, end: 20170815
  5. SUPRANE [Concomitant]
     Active Substance: DESFLURANE
     Indication: GENERAL ANAESTHESIA
     Dosage: 383 ML, UNK
     Route: 055
     Dates: start: 20170815, end: 20170815
  6. ACELIO [Concomitant]
     Active Substance: ACETAMINOPHEN
     Indication: GENERAL ANAESTHESIA
     Dosage: 1000 MG, UNK
     Route: 042
     Dates: start: 20170815, end: 20170815
  7. ESLAX INTRAVENOUS 50MG/5.0ML [Suspect]
     Active Substance: ROCURONIUM BROMIDE
     Indication: NEUROMUSCULAR BLOCKING THERAPY
     Dosage: 172 MG, QD
     Route: 042
     Dates: start: 20170815, end: 20170815
  8. SEVOFLURANE. [Concomitant]
     Active Substance: SEVOFLURANE
     Indication: MAINTENANCE OF ANAESTHESIA
     Dosage: UNK
     Route: 065
     Dates: start: 20170815, end: 20170815
  9. EPHEDRIN [Concomitant]
     Active Substance: EPHEDRINE HYDROCHLORIDE
     Indication: GENERAL ANAESTHESIA
     Dosage: 16 MG, UNK
     Route: 042
     Dates: start: 20170815, end: 20170815
  10. FENTANYL. [Concomitant]
     Active Substance: FENTANYL
     Indication: GENERAL ANAESTHESIA
     Dosage: 0.2 MG, UNK
     Route: 042
     Dates: start: 20170815, end: 20170815
  11. NEO-SYNESIN [Concomitant]
     Active Substance: PHENYLEPHRINE HYDROCHLORIDE
     Indication: GENERAL ANAESTHESIA
     Dosage: 2.6 MG, UNK
     Route: 042
     Dates: start: 20170815, end: 20170815
  12. BRIDION [Concomitant]
     Active Substance: SUGAMMADEX
     Indication: NEUROMUSCULAR BLOCKADE REVERSAL
     Dosage: 200 MG, UNK
     Route: 042
     Dates: start: 20170815, end: 20170815

REACTIONS (4)
  - Oxygen saturation decreased [Recovered/Resolved]
  - Recurrence of neuromuscular blockade [Recovered/Resolved]
  - Altered state of consciousness [Recovered/Resolved]
  - Respiratory arrest [Recovered/Resolved]

NARRATIVE: CASE EVENT DATE: 20170815
